FAERS Safety Report 7251760-6 (Version None)
Quarter: 2011Q1

REPORT INFORMATION
  Report Type: 
  Country: None (occurrence: None)
  Receive Date: 20110128
  Receipt Date: 20110121
  Transmission Date: 20110831
  Serious: Yes (Hospitalization, Other)
  Sender: FDA-Public Use
  Company Number: US-US-EMD SERONO, INC.-7004746

PATIENT
  Sex: Female
  Weight: 52 kg

DRUGS (11)
  1. WELLBUTRIN [Concomitant]
     Indication: DEPRESSION
  2. REBIF [Suspect]
     Indication: MULTIPLE SCLEROSIS
     Route: 058
     Dates: start: 20100408, end: 20100513
  3. REBIF [Suspect]
     Dates: start: 20100101, end: 20100101
  4. REBIF [Suspect]
     Dates: start: 20100701, end: 20100101
  5. DIAZEPAM [Concomitant]
  6. AMBIEN CR [Concomitant]
     Indication: INSOMNIA
  7. ROPINIROLE [Concomitant]
     Indication: RESTLESS LEGS SYNDROME
  8. MULTIPLE OTHER MEDICATIONS [Concomitant]
  9. REBIF [Suspect]
     Dates: start: 20100101, end: 20100101
  10. REBIF [Suspect]
     Dates: start: 20100101, end: 20100101
  11. CYMBALTA [Concomitant]

REACTIONS (14)
  - SINUSITIS [None]
  - CEREBROVASCULAR ACCIDENT [None]
  - HYPOTENSION [None]
  - RASH [None]
  - LISTLESS [None]
  - CENTRAL NERVOUS SYSTEM LESION [None]
  - SEDATION [None]
  - SPEECH DISORDER [None]
  - FATIGUE [None]
  - URINARY TRACT INFECTION [None]
  - MOVEMENT DISORDER [None]
  - ASTHENIA [None]
  - DYSPNOEA [None]
  - BLOOD GLUCOSE DECREASED [None]
